FAERS Safety Report 7092456-3 (Version None)
Quarter: 2010Q4

REPORT INFORMATION
  Report Type: 
  Country: None (occurrence: None)
  Receive Date: 20101108
  Receipt Date: 20101108
  Transmission Date: 20110411
  Serious: No
  Sender: FDA-Public Use
  Company Number: None

PATIENT
  Sex: Male

DRUGS (4)
  1. OXYCODONE HCL [Suspect]
     Indication: COMPLEX REGIONAL PAIN SYNDROME
     Dosage: 30MG TWO Q8H ORAL
     Route: 048
  2. OXYCODONE HCL [Suspect]
     Indication: LUMBAR SPINAL STENOSIS
     Dosage: 30MG TWO Q8H ORAL
     Route: 048
  3. VALIUM [Concomitant]
  4. BONTRIL [Concomitant]

REACTIONS (4)
  - ABDOMINAL PAIN [None]
  - DRUG INEFFECTIVE [None]
  - NAUSEA [None]
  - PRODUCT SUBSTITUTION ISSUE [None]
